FAERS Safety Report 25534245 (Version 2)
Quarter: 2025Q3

REPORT INFORMATION
  Report Type: Spontaneous
  Country: CA (occurrence: CA)
  Receive Date: 20250709
  Receipt Date: 20250725
  Transmission Date: 20251020
  Serious: Yes (Other)
  Sender: CSL BEHRING
  Company Number: CA-BEH-2025211837

PATIENT
  Age: 34 Year
  Sex: Female

DRUGS (2)
  1. PRIVIGEN [Suspect]
     Active Substance: HUMAN IMMUNOGLOBULIN G
     Indication: Product used for unknown indication
     Route: 065
     Dates: start: 20250618, end: 20250618
  2. TYLENOL [Concomitant]
     Active Substance: ACETAMINOPHEN
     Indication: Premedication

REACTIONS (7)
  - Shock [Unknown]
  - Body temperature increased [Unknown]
  - Chills [Unknown]
  - Chills [Unknown]
  - Dyspnoea [Unknown]
  - Tachycardia [Unknown]
  - Erythema [Unknown]

NARRATIVE: CASE EVENT DATE: 20250618
